APPROVED DRUG PRODUCT: PIPERACILLIN AND TAZOBACTAM
Active Ingredient: PIPERACILLIN SODIUM; TAZOBACTAM SODIUM
Strength: EQ 12GM BASE/VIAL;EQ 1.5GM BASE/VIAL
Dosage Form/Route: INJECTABLE;INJECTION
Application: A217409 | Product #002
Applicant: EUGIA PHARMA SPECIALITIES LTD
Approved: Oct 12, 2023 | RLD: No | RS: No | Type: DISCN